FAERS Safety Report 18823330 (Version 2)
Quarter: 2021Q1

REPORT INFORMATION
  Report Type: Spontaneous
  Country: US (occurrence: US)
  Receive Date: 20210202
  Receipt Date: 20210303
  Transmission Date: 20210419
  Serious: No
  Sender: FDA-Public Use
  Company Number: US-ASTRAZENECA-2021A005862

PATIENT
  Sex: Female

DRUGS (1)
  1. SYMBICORT [Suspect]
     Active Substance: BUDESONIDE\FORMOTEROL FUMARATE DIHYDRATE
     Indication: PNEUMONIA
     Dosage: SYMBICORT 80/4.5 MCG TWO RESPIRATORY INHALATIONS IN THE MORNING
     Route: 055
     Dates: start: 202012

REACTIONS (7)
  - Intentional product misuse [Unknown]
  - Dyspnoea [Unknown]
  - Device defective [Unknown]
  - Product packaging quantity issue [Unknown]
  - Wrong technique in device usage process [Unknown]
  - Intentional device misuse [Unknown]
  - Product dose omission issue [Unknown]
